FAERS Safety Report 8905317 (Version 1)
Quarter: 2012Q4

REPORT INFORMATION
  Report Type: 
  Country: US (occurrence: US)
  Receive Date: 20121113
  Receipt Date: 20121113
  Transmission Date: 20130627
  Serious: Yes (Other)
  Sender: FDA-Public Use
  Company Number: US-BAYER-2012-115994

PATIENT
  Age: 23 Year
  Sex: Female

DRUGS (1)
  1. MIRENA [Suspect]
     Indication: CONTRACEPTION
     Dosage: 20 mcg/24hr, CONT
     Route: 015
     Dates: start: 20121102

REACTIONS (5)
  - Post procedural haemorrhage [Recovered/Resolved]
  - Abdominal pain lower [Not Recovered/Not Resolved]
  - Vomiting [Not Recovered/Not Resolved]
  - Pyrexia [Not Recovered/Not Resolved]
  - Abdominal pain upper [Not Recovered/Not Resolved]
